FAERS Safety Report 18252702 (Version 1)
Quarter: 2020Q3

REPORT INFORMATION
  Report Type: Spontaneous
  Country: US (occurrence: US)
  Receive Date: 20200910
  Receipt Date: 20200910
  Transmission Date: 20201103
  Serious: Yes (Other)
  Sender: FDA-Public Use
  Company Number: None

PATIENT
  Age: 42 Year
  Sex: Female
  Weight: 80.55 kg

DRUGS (14)
  1. L?THEANINE [Concomitant]
     Active Substance: DIETARY SUPPLEMENT
  2. BIEST [Concomitant]
     Active Substance: ESTRADIOL\ESTRIOL
  3. CAMRESE [Concomitant]
     Active Substance: ETHINYL ESTRADIOL\LEVONORGESTREL
  4. CLONAZEPAM. [Concomitant]
     Active Substance: CLONAZEPAM
  5. SPIRNOLACTONE [Concomitant]
  6. NATURE?THROID [Suspect]
     Active Substance: THYROID, PORCINE
     Indication: HYPOTHYROIDISM
     Dosage: ?          QUANTITY:1 TABLET(S);?
     Route: 048
     Dates: start: 20200401, end: 20200910
  7. APRISO [Concomitant]
     Active Substance: MESALAMINE
  8. VITAMIN D [Concomitant]
     Active Substance: VITAMIN D NOS
  9. PRISTIQ EXTENDED?RELEASE [Concomitant]
     Active Substance: DESVENLAFAXINE SUCCINATE
  10. COLESEVELAM [Concomitant]
     Active Substance: COLESEVELAM
  11. CANASA [Concomitant]
     Active Substance: MESALAMINE
  12. RIZATRIPTAN. [Concomitant]
     Active Substance: RIZATRIPTAN
  13. AIMOVIG [Concomitant]
     Active Substance: ERENUMAB-AOOE
  14. TURMERIC CURCUMIN [Concomitant]
     Active Substance: HERBALS\TURMERIC

REACTIONS (4)
  - Fatigue [None]
  - Depression [None]
  - Anxiety [None]
  - Weight increased [None]

NARRATIVE: CASE EVENT DATE: 20200401
